FAERS Safety Report 19295735 (Version 3)
Quarter: 2021Q2

REPORT INFORMATION
  Report Type: Spontaneous
  Country: JP (occurrence: JP)
  Receive Date: 20210524
  Receipt Date: 20210612
  Transmission Date: 20210717
  Serious: Yes (Life-Threatening, Other)
  Sender: FDA-Public Use
  Company Number: JP-009507513-2104JPN001851J

PATIENT
  Age: 64 Year
  Sex: Male
  Weight: 68 kg

DRUGS (14)
  1. REMIFENTANIL [REMIFENTANIL HYDROCHLORIDE] [Concomitant]
     Active Substance: REMIFENTANIL HYDROCHLORIDE
     Indication: GENERAL ANAESTHESIA
     Dosage: 0.07 GAMMA
     Route: 042
     Dates: start: 20210422, end: 20210422
  2. ROCURONIUM BROMIDE. [Concomitant]
     Active Substance: ROCURONIUM BROMIDE
     Dosage: 10 MILLIGRAM
     Route: 042
     Dates: start: 20210422, end: 20210422
  3. ROCURONIUM BROMIDE. [Concomitant]
     Active Substance: ROCURONIUM BROMIDE
     Dosage: 10 MILLIGRAM
     Route: 042
     Dates: start: 20210422, end: 20210422
  4. PROPOFOL. [Concomitant]
     Active Substance: PROPOFOL
     Indication: ANAESTHESIA PROCEDURE
     Dosage: 120 MILLIGRAM
     Route: 065
     Dates: start: 20210422, end: 20210422
  5. ACELIO [Concomitant]
     Active Substance: ACETAMINOPHEN
     Dosage: 1000 MILLIGRAM
     Route: 065
     Dates: start: 20210422
  6. FENTANYL [FENTANYL CITRATE] [Concomitant]
     Active Substance: FENTANYL CITRATE
     Indication: GENERAL ANAESTHESIA
     Dosage: 50 MICROGRAM
     Route: 042
     Dates: start: 20210422, end: 20210422
  7. FENTANYL [FENTANYL CITRATE] [Concomitant]
     Active Substance: FENTANYL CITRATE
     Dosage: 25 MICROGRAM
     Route: 042
     Dates: start: 20210422, end: 20210422
  8. SEVOFLURANE. [Concomitant]
     Active Substance: SEVOFLURANE
     Dosage: 1.5 PERCENT
     Route: 065
     Dates: start: 20210422, end: 20210422
  9. PAXIL [Concomitant]
     Active Substance: PAROXETINE HYDROCHLORIDE
     Dosage: UNK
     Route: 065
  10. REMIFENTANIL [REMIFENTANIL HYDROCHLORIDE] [Concomitant]
     Active Substance: REMIFENTANIL HYDROCHLORIDE
     Dosage: 0.15 GAMMA
     Route: 042
     Dates: start: 20210422, end: 20210422
  11. ROCURONIUM BROMIDE. [Concomitant]
     Active Substance: ROCURONIUM BROMIDE
     Indication: GENERAL ANAESTHESIA
     Dosage: 40 MILLIGRAM
     Route: 042
     Dates: start: 20210422, end: 20210422
  12. SEVOFLURANE. [Concomitant]
     Active Substance: SEVOFLURANE
     Dosage: 6.0 PERCENT
     Route: 065
     Dates: start: 20210422, end: 20210422
  13. BRIDION [Suspect]
     Active Substance: SUGAMMADEX
     Indication: NEUROMUSCULAR BLOCKADE REVERSAL
     Dosage: 200 MILLIGRAM, ONCE
     Route: 042
     Dates: start: 20210422, end: 20210422
  14. SEVOFLURANE. [Concomitant]
     Active Substance: SEVOFLURANE
     Indication: ANAESTHESIA PROCEDURE
     Dosage: 3.0 PERCENT
     Route: 065
     Dates: start: 20210422, end: 20210422

REACTIONS (2)
  - Respiratory arrest [Recovered/Resolved]
  - Upper airway obstruction [Recovered/Resolved]

NARRATIVE: CASE EVENT DATE: 20210422
